FAERS Safety Report 4478544-6 (Version None)
Quarter: 2004Q4

REPORT INFORMATION
  Report Type: 
  Country: None (occurrence: None)
  Receive Date: 20041018
  Receipt Date: 20041018
  Transmission Date: 20050328
  Serious: Yes (Life-Threatening, Hospitalization)
  Sender: FDA-Public Use
  Company Number: None

PATIENT
  Sex: Female
  Weight: 49.8957 kg

DRUGS (4)
  1. FLUVOXAMINE [Suspect]
     Indication: MAJOR DEPRESSION
     Dosage: 150 MG PO ORAL
     Route: 048
     Dates: start: 20021125, end: 20021218
  2. FLUVOXAMINE [Suspect]
     Indication: POST-TRAUMATIC STRESS DISORDER
     Dosage: 150 MG PO ORAL
     Route: 048
     Dates: start: 20021125, end: 20021218
  3. CITALOPRAM [Suspect]
     Indication: MAJOR DEPRESSION
     Dosage: 20 MG PO ORAL
     Route: 048
     Dates: start: 20030114, end: 20030121
  4. CITALOPRAM [Suspect]
     Indication: POST-TRAUMATIC STRESS DISORDER
     Dosage: 20 MG PO ORAL
     Route: 048
     Dates: start: 20030114, end: 20030121

REACTIONS (20)
  - ABDOMINAL PAIN [None]
  - ABDOMINAL PAIN UPPER [None]
  - ALANINE AMINOTRANSFERASE INCREASED [None]
  - ANOREXIA [None]
  - ANXIETY [None]
  - ASPARTATE AMINOTRANSFERASE INCREASED [None]
  - BLOOD LACTATE DEHYDROGENASE INCREASED [None]
  - CATATONIA [None]
  - CHOLESTASIS [None]
  - CYTOLYTIC HEPATITIS [None]
  - DEPRESSION [None]
  - DIALYSIS [None]
  - EMOTIONAL DISTRESS [None]
  - HEPATOTOXICITY [None]
  - MUTISM [None]
  - NEPHROPATHY TOXIC [None]
  - PARANOIA [None]
  - RENAL TUBULAR NECROSIS [None]
  - TREATMENT NONCOMPLIANCE [None]
  - VOMITING [None]
